FAERS Safety Report 12150980 (Version 1)
Quarter: 2016Q1

REPORT INFORMATION
  Report Type: Report from Study
  Country: US (occurrence: US)
  Receive Date: 20160304
  Receipt Date: 20160304
  Transmission Date: 20160526
  Serious: No
  Sender: FDA-Public Use
  Company Number: US-AMGEN-USASL2015055268

PATIENT
  Age: 39 Year
  Sex: Male

DRUGS (1)
  1. SENSIPAR [Suspect]
     Active Substance: CINACALCET HYDROCHLORIDE
     Indication: PRODUCT USED FOR UNKNOWN INDICATION
     Dosage: UNK UNK, Q4WK
     Route: 065

REACTIONS (4)
  - Adverse drug reaction [Unknown]
  - Inappropriate schedule of drug administration [Unknown]
  - Diarrhoea [Recovered/Resolved]
  - Drug dose omission [Unknown]
